FAERS Safety Report 9555295 (Version 1)
Quarter: 2013Q3

REPORT INFORMATION
  Report Type: Spontaneous
  Country: US (occurrence: None)
  Receive Date: 20130816
  Receipt Date: 20130816
  Transmission Date: 20140515
  Serious: No
  Sender: FDA-Public Use
  Company Number: US-011498

PATIENT
  Sex: Female

DRUGS (1)
  1. PICO-SALAX (NOT SPECIFIED) [Suspect]
     Indication: BOWEL PREPARATION

REACTIONS (2)
  - Diarrhoea [None]
  - Drug ineffective [None]
